FAERS Safety Report 5037035-4 (Version None)
Quarter: 2006Q2

REPORT INFORMATION
  Report Type: 
  Country: None (occurrence: None)
  Receive Date: 20060623
  Receipt Date: 20060605
  Transmission Date: 20061013
  Serious: No
  Sender: FDA-Public Use
  Company Number: JP200603000002

PATIENT
  Age: 77 Year
  Sex: Female
  Weight: 38 kg

DRUGS (1)
  1. RALOXIFENE HCL [Suspect]
     Indication: OSTEOPOROSIS POSTMENOPAUSAL
     Dosage: 60 MG, DAILY (1/D), ORAL
     Route: 048
     Dates: start: 20050411, end: 20050802

REACTIONS (1)
  - NO ADVERSE EFFECT [None]
